FAERS Safety Report 16593629 (Version 1)
Quarter: 2019Q3

REPORT INFORMATION
  Report Type: Spontaneous
  Country: FR (occurrence: FR)
  Receive Date: 20190718
  Receipt Date: 20190718
  Transmission Date: 20191004
  Serious: Yes (Death)
  Sender: FDA-Public Use
  Company Number: FR-TEVA-2019-FR-1078123

PATIENT
  Age: 27 Year
  Sex: Female
  Weight: 104 kg

DRUGS (21)
  1. TEPADINA [Suspect]
     Active Substance: THIOTEPA
     Indication: STEM CELL TRANSPLANT
     Dosage: 540MG
     Route: 042
     Dates: start: 20190315, end: 20190315
  2. FLAGYL [Concomitant]
     Active Substance: METRONIDAZOLE\METRONIDAZOLE HYDROCHLORIDE
  3. MESNA. [Concomitant]
     Active Substance: MESNA
  4. PRIMPERAN [Concomitant]
     Active Substance: METOCLOPRAMIDE HYDROCHLORIDE
  5. ZARZIO [Concomitant]
     Active Substance: FILGRASTIM
  6. FLUDARABINE (PHOSPHATE DE) [Suspect]
     Active Substance: FLUDARABINE PHOSPHATE
     Indication: STEM CELL TRANSPLANT
     Dosage: 80MG
     Route: 042
     Dates: start: 20190316, end: 20190319
  7. BUSILVEX [Suspect]
     Active Substance: BUSULFAN
     Indication: STEM CELL TRANSPLANT
     Dosage: 228MG
     Route: 042
     Dates: start: 20190316, end: 20190317
  8. ENDOXAN [Suspect]
     Active Substance: CYCLOPHOSPHAMIDE
     Indication: STEM CELL TRANSPLANT
     Dosage: 5400MG
     Route: 042
     Dates: start: 20190324, end: 20190325
  9. PANTOPRAZOLE [Concomitant]
     Active Substance: PANTOPRAZOLE
  10. SMECTA [Concomitant]
     Active Substance: MONTMORILLONITE
  11. DIFICLIR [Concomitant]
     Active Substance: FIDAXOMICIN
  12. VORICONAZOLE. [Concomitant]
     Active Substance: VORICONAZOLE
  13. CELLCEPT [Concomitant]
     Active Substance: MYCOPHENOLATE MOFETIL\MYCOPHENOLATE MOFETIL HYDROCHLORIDE
  14. VALACICLOVIR [Concomitant]
     Active Substance: VALACYCLOVIR HYDROCHLORIDE
  15. ULTRAPROCT [Concomitant]
  16. ZOPICLONE [Concomitant]
     Active Substance: ZOPICLONE
  17. NOMEGESTROL [Concomitant]
     Active Substance: NOMEGESTROL
  18. VFEND [Concomitant]
     Active Substance: VORICONAZOLE
  19. CICLOSPORINE [Concomitant]
     Active Substance: CYCLOSPORINE
  20. CHOLURSO [Concomitant]
     Active Substance: URSODIOL
  21. ONDANSETRON [Concomitant]
     Active Substance: ONDANSETRON

REACTIONS (5)
  - Septic shock [Fatal]
  - Cellulitis [Fatal]
  - Sinusitis [Fatal]
  - Lung infection [Fatal]
  - Pancytopenia [Fatal]

NARRATIVE: CASE EVENT DATE: 20190325
